FAERS Safety Report 5618318-3 (Version None)
Quarter: 2008Q1

REPORT INFORMATION
  Report Type: 
  Country: None (occurrence: None)
  Receive Date: 20080205
  Receipt Date: 20080205
  Transmission Date: 20080703
  Serious: Yes (Other)
  Sender: FDA-Public Use
  Company Number: None

PATIENT
  Sex: Male
  Weight: 73.4827 kg

DRUGS (1)
  1. CHANTIX [Suspect]
     Indication: SMOKING CESSATION THERAPY
     Dosage: 1 MG 7 DAYS, 2 MG 7 DAYS  1 FOR 7 THEN 2  PO
     Route: 048
     Dates: start: 20080107, end: 20080125

REACTIONS (5)
  - ABNORMAL DREAMS [None]
  - AGGRESSION [None]
  - NIGHTMARE [None]
  - SOCIAL AVOIDANT BEHAVIOUR [None]
  - TENSION [None]
